FAERS Safety Report 10615156 (Version 1)
Quarter: 2014Q4

REPORT INFORMATION
  Report Type: Spontaneous
  Country: US (occurrence: None)
  Receive Date: 20141125
  Receipt Date: 20141125
  Transmission Date: 20150529
  Serious: Yes (Hospitalization)
  Sender: FDA-Public Use
  Company Number: None

PATIENT
  Age: 43 Year
  Sex: Male

DRUGS (3)
  1. STRIBILD [Suspect]
     Active Substance: COBICISTAT\ELVITEGRAVIR\EMTRICITABINE\TENOFOVIR DISOPROXIL FUMARATE
     Indication: HIV INFECTION
     Dates: start: 20130218, end: 20131216
  2. STRIBILD [Suspect]
     Active Substance: COBICISTAT\ELVITEGRAVIR\EMTRICITABINE\TENOFOVIR DISOPROXIL FUMARATE
     Indication: ACQUIRED IMMUNODEFICIENCY SYNDROME
     Dates: start: 20130218, end: 20131216
  3. STRIBILD [Suspect]
     Active Substance: COBICISTAT\ELVITEGRAVIR\EMTRICITABINE\TENOFOVIR DISOPROXIL FUMARATE
     Indication: HEPATITIS B
     Dates: start: 20130218, end: 20131216

REACTIONS (10)
  - Arthralgia [None]
  - Sleep disorder due to general medical condition, insomnia type [None]
  - Hepatic steatosis [None]
  - Drug-induced liver injury [None]
  - Myalgia [None]
  - Rash [None]
  - Oedema [None]
  - Muscle spasms [None]
  - Neuralgia [None]
  - Hepatomegaly [None]

NARRATIVE: CASE EVENT DATE: 20131031
